FAERS Safety Report 8967017 (Version 1)
Quarter: 2012Q4

REPORT INFORMATION
  Report Type: 
  Country: GB (occurrence: GB)
  Receive Date: 20121214
  Receipt Date: 20121214
  Transmission Date: 20130627
  Serious: Yes (Hospitalization)
  Sender: FDA-Public Use
  Company Number: GB-PFIZER INC-2008010147JJ

PATIENT
  Age: 70 Year
  Sex: Female

DRUGS (3)
  1. IBUPROFEN [Suspect]
     Indication: RHEUMATOID ARTHRITIS
     Dosage: 400 mg, 3x/day
     Route: 048
  2. SULFASALAZINE [Suspect]
     Indication: RHEUMATOID ARTHRITIS
     Dosage: 1 Gram, qd
     Route: 048
     Dates: start: 200105, end: 20010704
  3. ATENOLOL [Concomitant]
     Dosage: 50 Milligram, qd
     Route: 048

REACTIONS (8)
  - Asthenia [Recovering/Resolving]
  - Melaena [Recovering/Resolving]
  - Nausea [Recovering/Resolving]
  - Anaemia [Recovering/Resolving]
  - Decreased appetite [Recovering/Resolving]
  - Malaise [Recovering/Resolving]
  - Gastrointestinal haemorrhage [Recovering/Resolving]
  - Lethargy [None]
